FAERS Safety Report 24418738 (Version 1)
Quarter: 2024Q4

REPORT INFORMATION
  Report Type: Other
  Country: JP (occurrence: JP)
  Receive Date: 20241009
  Receipt Date: 20241009
  Transmission Date: 20250114
  Serious: Yes (Hospitalization)
  Sender: BIONPHARMA
  Company Number: JP-Bion-013993

PATIENT
  Age: 33 Year
  Sex: Female
  Weight: 38.5 kg

DRUGS (4)
  1. VALPROIC ACID [Suspect]
     Active Substance: VALPROIC ACID
     Indication: Tonic convulsion
     Dosage: 600MG
  2. PERAMPANEL [Concomitant]
     Active Substance: PERAMPANEL
     Indication: Tonic convulsion
     Dosage: 4MG
     Route: 048
  3. CLOBAZAM [Concomitant]
     Active Substance: CLOBAZAM
     Indication: Tonic convulsion
  4. LAMOTRIGINE [Concomitant]
     Active Substance: LAMOTRIGINE
     Indication: Tonic convulsion

REACTIONS (3)
  - Hypersomnia [Recovered/Resolved]
  - Toxicity to various agents [Unknown]
  - Drug interaction [Unknown]
